FAERS Safety Report 11770710 (Version 1)
Quarter: 2015Q4

REPORT INFORMATION
  Report Type: Spontaneous
  Country: US (occurrence: US)
  Receive Date: 20151123
  Receipt Date: 20151123
  Transmission Date: 20160304
  Serious: No
  Sender: FDA-Public Use
  Company Number: US-ELI_LILLY_AND_COMPANY-US201511001743

PATIENT
  Sex: Female

DRUGS (2)
  1. NOVOLOG [Suspect]
     Active Substance: INSULIN ASPART
  2. HUMULIN N [Suspect]
     Active Substance: INSULIN HUMAN
     Indication: TYPE 2 DIABETES MELLITUS
     Dosage: 20 U, EACH EVENING
     Route: 065
     Dates: start: 2012

REACTIONS (4)
  - Drug dose omission [Unknown]
  - Fall [Unknown]
  - Upper limb fracture [Unknown]
  - Eye disorder [Unknown]

NARRATIVE: CASE EVENT DATE: 20151101
